FAERS Safety Report 7378232-2 (Version None)
Quarter: 2011Q1

REPORT INFORMATION
  Report Type: 
  Country: None (occurrence: None)
  Receive Date: 20110328
  Receipt Date: 20110318
  Transmission Date: 20110831
  Serious: Yes (Other)
  Sender: FDA-Public Use
  Company Number: B0683616A

PATIENT
  Sex: Female

DRUGS (4)
  1. LANDSEN [Concomitant]
     Indication: SOCIAL PHOBIA
     Dosage: 1MG PER DAY
     Route: 048
     Dates: start: 20100721, end: 20100830
  2. MEILAX [Concomitant]
     Indication: SOCIAL PHOBIA
     Dosage: 2MG PER DAY
     Route: 048
     Dates: start: 20100721, end: 20100803
  3. ZOLOFT [Concomitant]
     Route: 048
     Dates: start: 20101018
  4. PAXIL [Suspect]
     Route: 048
     Dates: start: 20100721, end: 20101115

REACTIONS (6)
  - SOMNOLENCE [None]
  - SOCIAL PHOBIA [None]
  - HAEMORRHAGIC DIATHESIS [None]
  - DRUG WITHDRAWAL SYNDROME [None]
  - HAEMORRHAGE [None]
  - NAUSEA [None]
